FAERS Safety Report 15790642 (Version 1)
Quarter: 2019Q1

REPORT INFORMATION
  Report Type: Spontaneous
  Country: SE (occurrence: SE)
  Receive Date: 20190104
  Receipt Date: 20190104
  Transmission Date: 20190417
  Serious: Yes (Other)
  Sender: FDA-Public Use
  Company Number: SE-COOPERSURGICAL, INC.-SE-2018CPS034113

PATIENT

DRUGS (1)
  1. PARAGARD T 380A [Suspect]
     Active Substance: COPPER
     Indication: CONTRACEPTION
     Dosage: UNK
     Route: 015
     Dates: start: 20080101, end: 20181128

REACTIONS (5)
  - Complication of device removal [Not Recovered/Not Resolved]
  - Device use issue [Recovered/Resolved]
  - Foreign body in reproductive tract [Not Recovered/Not Resolved]
  - Device breakage [Not Recovered/Not Resolved]
  - Device material issue [Unknown]

NARRATIVE: CASE EVENT DATE: 20180101
